FAERS Safety Report 6903502-9 (Version None)
Quarter: 2010Q3

REPORT INFORMATION
  Report Type: 
  Country: None (occurrence: None)
  Receive Date: 20100803
  Receipt Date: 20081014
  Transmission Date: 20110219
  Serious: No
  Sender: FDA-Public Use
  Company Number: US-PFIZER INC-2008086620

PATIENT
  Sex: Female
  Weight: 58.6 kg

DRUGS (3)
  1. LYRICA [Suspect]
     Indication: MUSCLE SPASMS
     Dates: start: 20080912
  2. LYRICA [Suspect]
     Indication: HYPOAESTHESIA
  3. LYRICA [Suspect]
     Indication: INTERVERTEBRAL DISC DEGENERATION

REACTIONS (11)
  - AGITATION [None]
  - BALANCE DISORDER [None]
  - FATIGUE [None]
  - HEADACHE [None]
  - HEART RATE INCREASED [None]
  - HYPERTENSION [None]
  - MIGRAINE [None]
  - NASOPHARYNGITIS [None]
  - PHOTOPHOBIA [None]
  - SOMNOLENCE [None]
  - VERTIGO [None]
